FAERS Safety Report 8095602-8 (Version None)
Quarter: 2012Q1

REPORT INFORMATION
  Report Type: 
  Country: None (occurrence: None)
  Receive Date: 20120129
  Receipt Date: 20111227
  Transmission Date: 20120608
  Serious: No
  Sender: FDA-Public Use
  Company Number: US-ABBOTT-11P-163-0887159-00

PATIENT
  Age: 45 Year
  Sex: Female

DRUGS (6)
  1. ATENOLOL [Concomitant]
     Indication: HEART RATE INCREASED
  2. LODINE XL [Concomitant]
     Indication: INFLAMMATION
  3. FLEXERIL [Concomitant]
     Indication: MUSCULOSKELETAL STIFFNESS
  4. HUMIRA [Suspect]
     Indication: ANKYLOSING SPONDYLITIS
     Dates: start: 20111123
  5. HUMIRA [Suspect]
  6. ZYRTEC [Concomitant]
     Indication: HYPERSENSITIVITY

REACTIONS (3)
  - COUGH [None]
  - PAIN [None]
  - OROPHARYNGEAL PAIN [None]
